FAERS Safety Report 23537833 (Version 1)
Quarter: 2024Q1

REPORT INFORMATION
  Report Type: Spontaneous
  Country: RU (occurrence: None)
  Receive Date: 20240219
  Receipt Date: 20240219
  Transmission Date: 20240410
  Serious: Yes (Hospitalization)
  Sender: FDA-Public Use
  Company Number: RU-ROCHE-3510220

PATIENT
  Age: 60 Year
  Sex: Female

DRUGS (2)
  1. VEMURAFENIB [Suspect]
     Active Substance: VEMURAFENIB
     Indication: Metastatic malignant melanoma
     Dosage: 960MG TAB EACH TWICE A DAILY, 21 CYCLE OF TARGETED THERAPY  WITH SUSPECT
     Route: 065
     Dates: start: 20220418
  2. COBIMETINIB [Suspect]
     Active Substance: COBIMETINIB
     Indication: Metastatic malignant melanoma
     Dosage: 3 TABLETS, 20 MG EACH, 21 CYCLE OF TARGETED THERAPY OF SUSPECT
     Route: 065
     Dates: start: 20220418

REACTIONS (6)
  - COVID-19 [Unknown]
  - Diarrhoea [Unknown]
  - Skin toxicity [Unknown]
  - Pyrexia [Unknown]
  - Blood pressure increased [Unknown]
  - Erythema [Unknown]
